FAERS Safety Report 16037123 (Version 1)
Quarter: 2019Q1

REPORT INFORMATION
  Report Type: Report from Study
  Country: US (occurrence: US)
  Receive Date: 20190305
  Receipt Date: 20190305
  Transmission Date: 20190418
  Serious: Yes (Other)
  Sender: FDA-Public Use
  Company Number: US-TEVA-2019-US-1018317

PATIENT
  Sex: Female

DRUGS (1)
  1. COPAXONE [Suspect]
     Active Substance: GLATIRAMER ACETATE
     Indication: MULTIPLE SCLEROSIS
     Route: 058
     Dates: start: 20140224, end: 20141206

REACTIONS (3)
  - Deafness unilateral [Recovered/Resolved]
  - Therapy change [Unknown]
  - Deafness transitory [Recovered/Resolved]

NARRATIVE: CASE EVENT DATE: 2014
